FAERS Safety Report 4802836-1 (Version None)
Quarter: 2005Q4

REPORT INFORMATION
  Report Type: 
  Country: None (occurrence: None)
  Receive Date: 20051019
  Receipt Date: 20051005
  Transmission Date: 20060501
  Serious: Yes (Other)
  Sender: FDA-Public Use
  Company Number: 2005AP05291

PATIENT
  Age: 61 Year
  Sex: Male

DRUGS (6)
  1. IRESSA [Suspect]
     Indication: LUNG ADENOCARCINOMA STAGE IV
     Route: 048
     Dates: start: 20050524
  2. RADIOTHERAPY TO CHEST [Suspect]
     Dosage: 45 GY/16 FR IN AREA OF PRIMARY LESION, RIGHT UPPER MEDIASTINUM AND SUPRACLAVICULAR FOSSA
  3. CARBOPLATIN [Concomitant]
     Dosage: 3 COURSES
  4. PACLITAXEL [Concomitant]
     Dosage: 3 CYCLES
  5. GEMCITABINE [Concomitant]
     Dosage: 1 COURSE
     Dates: start: 20050426
  6. NAVELBINE [Concomitant]
     Dosage: 1 COURSE
     Dates: start: 20050426

REACTIONS (1)
  - RADIATION PNEUMONITIS [None]
